FAERS Safety Report 12821267 (Version 1)
Quarter: 2016Q4

REPORT INFORMATION
  Report Type: Report from Study
  Country: US (occurrence: US)
  Receive Date: 20161007
  Receipt Date: 20161007
  Transmission Date: 20170207
  Serious: Yes (Other)
  Sender: FDA-Public Use
  Company Number: US-ROCHE-1177088

PATIENT
  Sex: Male
  Weight: 72.5 kg

DRUGS (43)
  1. DOCETAXEL. [Suspect]
     Active Substance: DOCETAXEL
     Dosage: COURSE ID 11
     Route: 042
     Dates: start: 20121210
  2. LENALIDOMIDE [Suspect]
     Active Substance: LENALIDOMIDE
     Dosage: COURSE ID 3
     Route: 048
     Dates: start: 20120618
  3. PREDNISONE. [Suspect]
     Active Substance: PREDNISONE
     Dosage: COURSE ID 8
     Route: 048
     Dates: start: 20121010
  4. PREDNISONE. [Suspect]
     Active Substance: PREDNISONE
     Dosage: COURSE ID 47
     Route: 048
     Dates: start: 20150121
  5. BEVACIZUMAB [Suspect]
     Active Substance: BEVACIZUMAB
     Indication: PROSTATE CANCER
     Dosage: OVER 30-90 MINUTES ON DAY 1, LAST DOSE ON 29-OCT-2012, COURSE ID 1
     Route: 042
     Dates: start: 20120507
  6. DOCETAXEL. [Suspect]
     Active Substance: DOCETAXEL
     Dosage: COURSE ID 53
     Route: 042
     Dates: start: 20150526
  7. LENALIDOMIDE [Suspect]
     Active Substance: LENALIDOMIDE
     Dosage: COURSE ID 9
     Route: 048
     Dates: start: 20121010
  8. PREDNISONE. [Suspect]
     Active Substance: PREDNISONE
     Indication: PROSTATE CANCER
     Dosage: LAST DOSE ON 19-NOV-2012, COURSE ID 1
     Route: 048
     Dates: start: 20120507
  9. BEVACIZUMAB [Suspect]
     Active Substance: BEVACIZUMAB
     Dosage: COURSE ID 2
     Route: 042
     Dates: start: 20120529
  10. BEVACIZUMAB [Suspect]
     Active Substance: BEVACIZUMAB
     Dosage: COURSE ID 3
     Route: 042
     Dates: start: 20120618
  11. BEVACIZUMAB [Suspect]
     Active Substance: BEVACIZUMAB
     Dosage: COURSE ID 6
     Route: 042
     Dates: start: 20120820
  12. DOCETAXEL. [Suspect]
     Active Substance: DOCETAXEL
     Indication: PROSTATE CANCER
     Dosage: OVER 60 MINUTES ON DAY 1, LAST DOSE ON 29-OCT-2012, COURSE ID 1
     Route: 042
     Dates: start: 20120507
  13. LENALIDOMIDE [Suspect]
     Active Substance: LENALIDOMIDE
     Dosage: COURSE ID 8
     Route: 048
     Dates: start: 20121010
  14. PREDNISONE. [Suspect]
     Active Substance: PREDNISONE
     Dosage: COURSE ID 13
     Route: 048
     Dates: start: 20130122
  15. PREDNISONE. [Suspect]
     Active Substance: PREDNISONE
     Dosage: COURSE ID 14
     Route: 048
     Dates: start: 20130211
  16. BEVACIZUMAB [Suspect]
     Active Substance: BEVACIZUMAB
     Dosage: COURSE ID 5
     Route: 042
     Dates: start: 20120529
  17. DOCETAXEL. [Suspect]
     Active Substance: DOCETAXEL
     Dosage: COURSE ID 5
     Route: 042
     Dates: start: 20120730
  18. LENALIDOMIDE [Suspect]
     Active Substance: LENALIDOMIDE
     Indication: PROSTATE CANCER
     Dosage: ON DAYS 1-14, LAST DOSE ON 31-OCT-2012, COURSE ID 1
     Route: 048
     Dates: start: 20120507
  19. LENALIDOMIDE [Suspect]
     Active Substance: LENALIDOMIDE
     Dosage: COURSE ID 2
     Route: 048
     Dates: start: 20120529
  20. LENALIDOMIDE [Suspect]
     Active Substance: LENALIDOMIDE
     Dosage: COURSE ID 7
     Route: 048
     Dates: start: 20120910
  21. PREDNISONE. [Suspect]
     Active Substance: PREDNISONE
     Dosage: COURSE ID 2
     Route: 048
     Dates: start: 20120529
  22. PREDNISONE. [Suspect]
     Active Substance: PREDNISONE
     Dosage: COURSE ID 11
     Route: 048
     Dates: start: 20121210
  23. PREDNISONE. [Suspect]
     Active Substance: PREDNISONE
     Dosage: COURSE ID 31
     Route: 048
     Dates: start: 20140218
  24. BEVACIZUMAB [Suspect]
     Active Substance: BEVACIZUMAB
     Dosage: COURSE ID 9
     Route: 042
     Dates: start: 20120820
  25. DOCETAXEL. [Suspect]
     Active Substance: DOCETAXEL
     Dosage: COURSE ID 6
     Route: 042
     Dates: start: 20120820
  26. DOCETAXEL. [Suspect]
     Active Substance: DOCETAXEL
     Dosage: COURSE ID 8
     Route: 042
     Dates: start: 20121010
  27. LENALIDOMIDE [Suspect]
     Active Substance: LENALIDOMIDE
     Dosage: COURSE ID 6
     Route: 048
     Dates: start: 20120820
  28. PREDNISONE. [Suspect]
     Active Substance: PREDNISONE
     Dosage: COURSE ID 3
     Route: 048
     Dates: start: 20120618
  29. PREDNISONE. [Suspect]
     Active Substance: PREDNISONE
     Dosage: COURSE ID 6
     Route: 048
     Dates: start: 20120820
  30. PREDNISONE. [Suspect]
     Active Substance: PREDNISONE
     Dosage: COURSE ID 22
     Route: 048
     Dates: start: 20130805
  31. PREDNISONE. [Suspect]
     Active Substance: PREDNISONE
     Dosage: COURSE ID 53
     Route: 048
     Dates: start: 20150526
  32. DOCETAXEL. [Suspect]
     Active Substance: DOCETAXEL
     Dosage: COURSE ID 7
     Route: 042
     Dates: start: 20120910
  33. DOCETAXEL. [Suspect]
     Active Substance: DOCETAXEL
     Dosage: COURSE ID 9
     Route: 042
     Dates: start: 20121010
  34. LENALIDOMIDE [Suspect]
     Active Substance: LENALIDOMIDE
     Dosage: COURSE ID 5
     Route: 048
     Dates: start: 20120730
  35. PREDNISONE. [Suspect]
     Active Substance: PREDNISONE
     Dosage: COURSE ID 5
     Route: 048
     Dates: start: 20120730
  36. BEVACIZUMAB [Suspect]
     Active Substance: BEVACIZUMAB
     Dosage: COURSE ID 7
     Route: 042
     Dates: start: 20120820
  37. DOCETAXEL. [Suspect]
     Active Substance: DOCETAXEL
     Dosage: COURSE ID 2
     Route: 042
     Dates: start: 20120529
  38. PREDNISONE. [Suspect]
     Active Substance: PREDNISONE
     Dosage: COURSE ID 7
     Route: 048
     Dates: start: 20120910
  39. PREDNISONE. [Suspect]
     Active Substance: PREDNISONE
     Dosage: COURSE ID 42
     Route: 048
     Dates: start: 20141007
  40. PREDNISONE. [Suspect]
     Active Substance: PREDNISONE
     Dosage: COURSE ID 26
     Route: 048
     Dates: start: 20131105
  41. DOCETAXEL. [Suspect]
     Active Substance: DOCETAXEL
     Dosage: COURSE ID 3
     Route: 042
     Dates: start: 20120618
  42. DOCETAXEL. [Suspect]
     Active Substance: DOCETAXEL
     Dosage: COURSE ID 14
     Route: 042
     Dates: start: 20130211
  43. PREDNISONE. [Suspect]
     Active Substance: PREDNISONE
     Dosage: COURSE ID 9
     Route: 048
     Dates: start: 20121029

REACTIONS (2)
  - Hypophosphataemia [Unknown]
  - Transient ischaemic attack [Recovered/Resolved]
